FAERS Safety Report 26104155 (Version 1)
Quarter: 2025Q4

REPORT INFORMATION
  Report Type: Spontaneous
  Country: US (occurrence: US)
  Receive Date: 20251129
  Receipt Date: 20251129
  Transmission Date: 20260118
  Serious: No
  Sender: ALEXION PHARMACEUTICALS
  Company Number: US-AstraZeneca-CH-01002634A

PATIENT
  Sex: Female

DRUGS (1)
  1. NEXIUM [Suspect]
     Active Substance: ESOMEPRAZOLE MAGNESIUM
     Route: 065

REACTIONS (11)
  - Skin disorder [Unknown]
  - Gastrointestinal disorder [Unknown]
  - Allergy to metals [Unknown]
  - Pruritus [Unknown]
  - Urticaria [Unknown]
  - Cough [Unknown]
  - Product use issue [Unknown]
  - Asthma [Unknown]
  - Seasonal allergy [Unknown]
  - Wheezing [Unknown]
  - Hypersensitivity [Unknown]
